FAERS Safety Report 14195051 (Version 2)
Quarter: 2017Q4

REPORT INFORMATION
  Report Type: Spontaneous
  Country: US (occurrence: US)
  Receive Date: 20171116
  Receipt Date: 20171123
  Transmission Date: 20180321
  Serious: Yes (Other)
  Sender: FDA-Public Use
  Company Number: US-009507513-1711USA003742

PATIENT
  Age: 9 Year
  Sex: Female

DRUGS (10)
  1. PROPOFOL. [Suspect]
     Active Substance: PROPOFOL
     Indication: GENERAL ANAESTHESIA
     Dosage: 3 MG/KG, UNK
  2. ELECTROLYTES (UNSPECIFIED) (+) SODIUM LACTATE [Suspect]
     Active Substance: ELECTROLYTES NOS\SODIUM LACTATE
     Indication: GENERAL ANAESTHESIA
     Dosage: 33 ML/KG
  3. DIVALPROEX SODIUM. [Concomitant]
     Active Substance: DIVALPROEX SODIUM
     Indication: EPILEPSY
     Dosage: UNK
  4. PROPOFOL. [Suspect]
     Active Substance: PROPOFOL
     Indication: INDUCTION OF ANAESTHESIA
  5. PROVENTIL [Suspect]
     Active Substance: ALBUTEROL
     Indication: GENERAL ANAESTHESIA
     Dosage: 8 PUFFS, UNK
     Route: 055
  6. FENTANYL. [Suspect]
     Active Substance: FENTANYL
     Indication: GENERAL ANAESTHESIA
     Dosage: 3 MICROGRAM PER KILOGRAM, UNK
  7. SEVOFLURANE. [Suspect]
     Active Substance: SEVOFLURANE
     Indication: GENERAL ANAESTHESIA
     Dosage: UNK
  8. LEVETIRACETAM. [Concomitant]
     Active Substance: LEVETIRACETAM
     Indication: EPILEPSY
  9. VANCOMYCIN [Suspect]
     Active Substance: VANCOMYCIN
     Indication: GENERAL ANAESTHESIA
     Dosage: 12.5 MG/KG
  10. ZONISAMIDE. [Concomitant]
     Active Substance: ZONISAMIDE
     Indication: EPILEPSY

REACTIONS (1)
  - Epilepsy [Recovered/Resolved]
